FAERS Safety Report 19913855 (Version 1)
Quarter: 2021Q4

REPORT INFORMATION
  Report Type: Spontaneous
  Country: CN (occurrence: CN)
  Receive Date: 20211004
  Receipt Date: 20211004
  Transmission Date: 20220303
  Serious: Yes (Hospitalization, Disabling)
  Sender: FDA-Public Use
  Company Number: CN-BAXTER-2021BAX024557

PATIENT
  Age: 36 Year
  Sex: Female
  Weight: 57 kg

DRUGS (13)
  1. CYCLOPHOSPHAMIDE [Suspect]
     Active Substance: CYCLOPHOSPHAMIDE
     Indication: Breast cancer female
     Dosage: 5% GLUCOSE INJECTION+ CYCLOPHOSPHAMIDE, FIRST CYCLE
     Route: 041
     Dates: start: 20200218, end: 20200318
  2. CYCLOPHOSPHAMIDE [Suspect]
     Active Substance: CYCLOPHOSPHAMIDE
     Dosage: 5% GLUCOSE INJECTION 500ML + CYCLOPHOSPHAMIDE 800 MG, SECOND TO FOURTH CHEMOTHERAPY, DAY 1.
     Route: 041
     Dates: start: 20200218, end: 20200318
  3. CYCLOPHOSPHAMIDE [Suspect]
     Active Substance: CYCLOPHOSPHAMIDE
     Dosage: 5% GLUCOSE INJECTION+ CYCLOPHOSPHAMIDE, DOSE REINTRODUCED.
     Route: 041
  4. DEXTROSE [Suspect]
     Active Substance: DEXTROSE
     Indication: Medication dilution
     Dosage: CYCLOPHOSPHAMIDE FOR INJECTION + 5% GLUCOSE INJECTION, FIRST CYCLE
     Route: 041
  5. DEXTROSE [Suspect]
     Active Substance: DEXTROSE
     Dosage: EPIRUBICIN HYDROCHLORIDE+ 5% GLUCOSE INJECTION, FIRST CYCLE
     Route: 041
  6. DEXTROSE [Suspect]
     Active Substance: DEXTROSE
     Dosage: 5% GLUCOSE INJECTION 500ML + CYCLOPHOSPHAMIDE 0.8G, SECOND TO FOURTH CYCLE, DAY 1
     Route: 041
  7. DEXTROSE [Suspect]
     Active Substance: DEXTROSE
     Dosage: 5% GLUCOSE INJECTION 500ML + EPIRUBICIN 140 MG, SECOND TO FOURTH CHEMOTHERAPY, DAY1
     Route: 041
     Dates: start: 20200218, end: 20200318
  8. DEXTROSE [Suspect]
     Active Substance: DEXTROSE
     Dosage: 5% GLUCOSE INJECTION+ CYCLOPHOSPHAMIDE, DOSE REINTRODUCED
     Route: 041
  9. DEXTROSE [Suspect]
     Active Substance: DEXTROSE
     Dosage: 5% GLUCOSE INJECTION+ EPIRUBICIN, DOSE REINTRODUCED
     Route: 041
  10. EPIRUBICIN [Suspect]
     Active Substance: EPIRUBICIN
     Indication: Breast cancer female
     Dosage: 5% GLUCOSE INJECTION+ EPIRUBICIN, FIRST CHEMOTHERAPY
     Route: 041
  11. EPIRUBICIN [Suspect]
     Active Substance: EPIRUBICIN
     Dosage: 5% GLUCOSE INJECTION 500ML + EPIRUBICIN 140 MG, SECOND TO FOURTH CHEMOTHERAPY, DAY1
     Route: 041
     Dates: start: 20200218, end: 20200318
  12. EPIRUBICIN [Suspect]
     Active Substance: EPIRUBICIN
     Dosage: 5% GLUCOSE INJECTION+ EPIRUBICIN, DOSE REINTRODUCED
     Route: 041
  13. LEUCOGEN [Concomitant]
     Active Substance: LEUCOGEN
     Indication: Product used for unknown indication
     Route: 065
     Dates: start: 202002

REACTIONS (2)
  - White blood cell count decreased [Recovering/Resolving]
  - Agranulocytosis [Recovering/Resolving]

NARRATIVE: CASE EVENT DATE: 20200303
